FAERS Safety Report 16773903 (Version 2)
Quarter: 2019Q4

REPORT INFORMATION
  Report Type: Report from Study
  Country: None (occurrence: US)
  Receive Date: 20190904
  Receipt Date: 20191006
  Transmission Date: 20200122
  Serious: Yes (Hospitalization, Other)
  Sender: FDA-Public Use
  Company Number: US-ABBVIE-18K-163-2554884-00

PATIENT
  Age: 31 Year
  Sex: Female

DRUGS (5)
  1. HUMIRA [Suspect]
     Active Substance: ADALIMUMAB
     Dosage: DAY 29
     Route: 058
     Dates: start: 20181203, end: 201901
  2. HUMIRA [Suspect]
     Active Substance: ADALIMUMAB
     Indication: CROHN^S DISEASE
     Dosage: DAY1
     Route: 058
     Dates: start: 20181105, end: 20181105
  3. HUMIRA [Suspect]
     Active Substance: ADALIMUMAB
     Route: 058
     Dates: start: 2019, end: 201908
  4. HUMIRA [Suspect]
     Active Substance: ADALIMUMAB
     Route: 058
     Dates: start: 20190507, end: 201908
  5. HUMIRA [Suspect]
     Active Substance: ADALIMUMAB
     Dosage: DAY 15
     Route: 058
     Dates: start: 20181119, end: 20181119

REACTIONS (19)
  - Small intestinal obstruction [Unknown]
  - Injection site pruritus [Recovering/Resolving]
  - Diarrhoea [Not Recovered/Not Resolved]
  - Arthralgia [Not Recovered/Not Resolved]
  - Crohn^s disease [Unknown]
  - Enteritis infectious [Unknown]
  - Crohn^s disease [Recovered/Resolved]
  - Injection site rash [Recovering/Resolving]
  - Urinary tract infection [Recovered/Resolved]
  - Anxiety [Unknown]
  - Injection site erythema [Recovering/Resolving]
  - Ear infection [Unknown]
  - Decreased appetite [Unknown]
  - Drug ineffective [Not Recovered/Not Resolved]
  - Nausea [Not Recovered/Not Resolved]
  - Depression [Unknown]
  - Injection site vesicles [Recovering/Resolving]
  - Abdominal pain [Not Recovered/Not Resolved]
  - Cervicitis [Recovered/Resolved]

NARRATIVE: CASE EVENT DATE: 201811
